FAERS Safety Report 11769356 (Version 1)
Quarter: 2015Q4

REPORT INFORMATION
  Report Type: Spontaneous
  Country: US (occurrence: US)
  Receive Date: 20151123
  Receipt Date: 20151123
  Transmission Date: 20160304
  Serious: Yes (Other)
  Sender: FDA-Public Use
  Company Number: US-PFIZER INC-2015393267

PATIENT
  Age: 65 Year
  Sex: Female

DRUGS (8)
  1. ITRACONAZOLE. [Concomitant]
     Active Substance: ITRACONAZOLE
     Dosage: 200 MG, DAILY
  2. OMEPRAZOLE. [Concomitant]
     Active Substance: OMEPRAZOLE
     Dosage: 20 MG, 2X/DAY
  3. SULFAMETHOXAZOLE/TRIMETHOPRIM [Suspect]
     Active Substance: SULFAMETHOXAZOLE\TRIMETHOPRIM
     Indication: ANTIFUNGAL PROPHYLAXIS
     Dosage: UNK
  4. TACROLIMUS. [Concomitant]
     Active Substance: TACROLIMUS
     Dosage: 2.5 MG, 2X/DAY
  5. DAPSONE. [Concomitant]
     Active Substance: DAPSONE
     Dosage: 100 MG, DAILY
  6. MYCOPHENOLATE MOFETIL. [Interacting]
     Active Substance: MYCOPHENOLATE MOFETIL
     Indication: IMMUNOSUPPRESSION
     Dosage: 500 MG, 2X/DAY
  7. VALGANCICLOVIR [Interacting]
     Active Substance: VALGANCICLOVIR
     Indication: IMMUNOSUPPRESSION
     Dosage: 450 MG, 1X/DAY
  8. PREDNISONE. [Concomitant]
     Active Substance: PREDNISONE
     Dosage: 20 MG, DAILY

REACTIONS (3)
  - Drug interaction [Unknown]
  - Bone marrow failure [Unknown]
  - Leukopenia [Unknown]
